FAERS Safety Report 6924346-8 (Version None)
Quarter: 2010Q3

REPORT INFORMATION
  Report Type: 
  Country: None (occurrence: None)
  Receive Date: 20100811
  Receipt Date: 20100811
  Transmission Date: 20110219
  Serious: No
  Sender: FDA-Public Use
  Company Number: None

PATIENT
  Sex: Female
  Weight: 65.6355 kg

DRUGS (2)
  1. AZITHROMYCIN [Suspect]
     Indication: BACTERIAL INFECTION
     Dosage: 250MG 2 TAB PO X1 D PO ; 250MG 1 TAB X 1D
     Route: 048
     Dates: start: 20070928
  2. AZITHROMYCIN [Suspect]
     Indication: BACTERIAL INFECTION
     Dosage: 250MG 2 TAB PO X1 D PO ; 250MG 1 TAB X 1D
     Route: 048
     Dates: start: 20071008

REACTIONS (2)
  - ERYTHEMA [None]
  - RASH PRURITIC [None]
